FAERS Safety Report 8552610-8 (Version None)
Quarter: 2012Q3

REPORT INFORMATION
  Report Type: 
  Country: None (occurrence: None)
  Receive Date: 20120731
  Receipt Date: 20120726
  Transmission Date: 20120928
  Serious: No
  Sender: FDA-Public Use
  Company Number: US-PFIZER INC-2012137832

PATIENT
  Sex: Female

DRUGS (2)
  1. IBUPROFEN (ADVIL) [Suspect]
     Indication: PAIN
     Dosage: 200 MG, UNK
     Route: 048
  2. IBUPROFEN (ADVIL) [Suspect]
     Indication: DISCOMFORT

REACTIONS (3)
  - POOR QUALITY DRUG ADMINISTERED [None]
  - PRODUCT PHYSICAL ISSUE [None]
  - LIGAMENT SPRAIN [None]
